FAERS Safety Report 13382521 (Version 1)
Quarter: 2017Q1

REPORT INFORMATION
  Report Type: Report from Study
  Country: US (occurrence: US)
  Receive Date: 20170329
  Receipt Date: 20170329
  Transmission Date: 20170429
  Serious: Yes (Hospitalization, Other)
  Sender: FDA-Public Use
  Company Number: US-TAKEDA-2017TUS006140

PATIENT
  Age: 64 Year
  Sex: Female
  Weight: 54.42 kg

DRUGS (1)
  1. VEDOLIZUMAB [Suspect]
     Active Substance: VEDOLIZUMAB
     Indication: CROHN^S DISEASE
     Dosage: 300 MG, UNK
     Route: 042
     Dates: start: 20161028

REACTIONS (7)
  - Chest discomfort [Recovered/Resolved]
  - Chest pain [Recovered/Resolved]
  - Pruritus generalised [Recovered/Resolved]
  - Parkinsonism [Not Recovered/Not Resolved]
  - Rash erythematous [Recovering/Resolving]
  - Chest discomfort [Unknown]
  - Bronchitis viral [Recovered/Resolved]

NARRATIVE: CASE EVENT DATE: 201610
